FAERS Safety Report 15968495 (Version 5)
Quarter: 2019Q4

REPORT INFORMATION
  Report Type: Spontaneous
  Country: US (occurrence: US)
  Receive Date: 20190215
  Receipt Date: 20191007
  Transmission Date: 20200122
  Serious: Yes (Hospitalization, Other)
  Sender: FDA-Public Use
  Company Number: US-ASTRAZENECA-2018SF48230

PATIENT
  Age: 758 Month
  Sex: Male
  Weight: 106.6 kg

DRUGS (19)
  1. LYRICA [Concomitant]
     Active Substance: PREGABALIN
  2. ENTRESTO [Concomitant]
     Active Substance: SACUBITRIL\VALSARTAN
  3. ISOSORBIDE DINITRATE. [Concomitant]
     Active Substance: ISOSORBIDE DINITRATE
  4. CARVEDILOL. [Concomitant]
     Active Substance: CARVEDILOL
  5. TAMSULOSIN [Concomitant]
     Active Substance: TAMSULOSIN
  6. NEXIUM 24HR [Suspect]
     Active Substance: ESOMEPRAZOLE MAGNESIUM
     Indication: GASTROOESOPHAGEAL REFLUX DISEASE
     Route: 048
     Dates: start: 20150101, end: 20171231
  7. COLCRYS [Concomitant]
     Active Substance: COLCHICINE
  8. NOVOLOG [Concomitant]
     Active Substance: INSULIN ASPART
  9. OXYCODONE [Concomitant]
     Active Substance: OXYCODONE
  10. ADVAIR DISKUS [Concomitant]
     Active Substance: FLUTICASONE PROPIONATE\SALMETEROL XINAFOATE
  11. ASPIRIN. [Concomitant]
     Active Substance: ASPIRIN
  12. METOLAZONE. [Concomitant]
     Active Substance: METOLAZONE
  13. SIMVASTATIN. [Concomitant]
     Active Substance: SIMVASTATIN
  14. SPIRONOLACTONE. [Concomitant]
     Active Substance: SPIRONOLACTONE
  15. CYCLOBENZAPRINE. [Concomitant]
     Active Substance: CYCLOBENZAPRINE
  16. ALLOPURINOL. [Concomitant]
     Active Substance: ALLOPURINOL
  17. CEPHALEXIN. [Concomitant]
     Active Substance: CEPHALEXIN
  18. FUROSEMIDE. [Concomitant]
     Active Substance: FUROSEMIDE
  19. LEVEMIR [Concomitant]
     Active Substance: INSULIN DETEMIR

REACTIONS (5)
  - Renal impairment [Unknown]
  - Renal failure [Unknown]
  - Acute kidney injury [Unknown]
  - Renal injury [Unknown]
  - Chronic kidney disease [Not Recovered/Not Resolved]

NARRATIVE: CASE EVENT DATE: 201204
